FAERS Safety Report 7277536-1 (Version None)
Quarter: 2011Q1

REPORT INFORMATION
  Report Type: 
  Country: None (occurrence: None)
  Receive Date: 20110207
  Receipt Date: 20110128
  Transmission Date: 20110831
  Serious: Yes (Other)
  Sender: FDA-Public Use
  Company Number: DE-JNJFOC-20110107929

PATIENT
  Sex: Male

DRUGS (3)
  1. GEMFIBROZIL [Concomitant]
     Indication: HYPERLIPIDAEMIA
     Route: 065
  2. TAVANIC [Suspect]
     Indication: BRONCHITIS BACTERIAL
     Route: 048
  3. UNKNOWN MEDICATION [Concomitant]
     Indication: PROSTATIC DISORDER
     Route: 065

REACTIONS (7)
  - PERSONALITY CHANGE [None]
  - DECREASED APPETITE [None]
  - BLOOD CREATININE INCREASED [None]
  - ASTHENIA [None]
  - ANXIETY [None]
  - DIZZINESS [None]
  - WEIGHT DECREASED [None]
